FAERS Safety Report 21308090 (Version 2)
Quarter: 2024Q2

REPORT INFORMATION
  Report Type: Spontaneous
  Country: GB (occurrence: None)
  Receive Date: 20220908
  Receipt Date: 20240405
  Transmission Date: 20240716
  Serious: Yes (Death)
  Sender: FDA-Public Use
  Company Number: GB-ROCHE-3162865

PATIENT
  Age: 23 Year
  Sex: Male
  Weight: 41.3 kg

DRUGS (1)
  1. ISOTRETINOIN [Suspect]
     Active Substance: ISOTRETINOIN
     Indication: Product used for unknown indication
     Route: 065

REACTIONS (2)
  - Suicidal ideation [Fatal]
  - Sexual life impairment [Unknown]

NARRATIVE: CASE EVENT DATE: 20220810
